FAERS Safety Report 4330588-0 (Version None)
Quarter: 2004Q1

REPORT INFORMATION
  Report Type: 
  Country: None (occurrence: None)
  Receive Date: 20040329
  Receipt Date: 20040308
  Transmission Date: 20041129
  Serious: Yes (Hospitalization)
  Sender: FDA-Public Use
  Company Number: F01200400490

PATIENT
  Age: 62 Year
  Sex: Male

DRUGS (5)
  1. XATRAL - (ALFUZOSIN) - TABLET PR - 10 MG [Suspect]
     Indication: BENIGN PROSTATIC HYPERPLASIA
     Dosage: 10 MG OD ORAL
     Route: 048
     Dates: start: 20030303, end: 20040308
  2. WELLBUTRIN SR [Concomitant]
  3. REMERON [Concomitant]
  4. MOGADON (NITRAZEPAM) [Concomitant]
  5. DIOVAN [Concomitant]

REACTIONS (1)
  - EPISTAXIS [None]
